FAERS Safety Report 20049319 (Version 1)
Quarter: 2021Q4

REPORT INFORMATION
  Report Type: Spontaneous
  Country: JP (occurrence: None)
  Receive Date: 20211109
  Receipt Date: 20211109
  Transmission Date: 20220303
  Serious: Yes (Other)
  Sender: FDA-Public Use
  Company Number: JP-AstraZeneca-2021A790834

PATIENT
  Age: 75 Year
  Sex: Male

DRUGS (2)
  1. CICLESONIDE [Suspect]
     Active Substance: CICLESONIDE
     Indication: COVID-19 pneumonia
     Dosage: 800 MCG/DAY, TWICE DAILY
     Route: 055
  2. LOPINAVIR\RITONAVIR [Concomitant]
     Active Substance: LOPINAVIR\RITONAVIR
     Indication: COVID-19 pneumonia
     Dosage: 800 MG/200 MG/DAY, TWICE DAILY

REACTIONS (2)
  - Oral candidiasis [Recovered/Resolved]
  - Off label use [Unknown]
